FAERS Safety Report 14790223 (Version 9)
Quarter: 2019Q1

REPORT INFORMATION
  Report Type: Report from Study
  Country: ES (occurrence: ES)
  Receive Date: 20180423
  Receipt Date: 20190325
  Transmission Date: 20190417
  Serious: Yes (Other)
  Sender: FDA-Public Use
  Company Number: PHHO2018ES005074

PATIENT
  Age: 46 Year
  Sex: Female
  Weight: 53 kg

DRUGS (8)
  1. MORPHINE [Concomitant]
     Active Substance: MORPHINE
     Indication: MUSCULOSKELETAL PAIN
     Dosage: 30 G, QD
     Route: 048
     Dates: start: 20171129
  2. LYRICA [Concomitant]
     Active Substance: PREGABALIN
     Indication: MUSCULOSKELETAL PAIN
     Dosage: 300 MG, QD
     Route: 048
     Dates: start: 20171129
  3. DESVENLAFAXINE. [Concomitant]
     Active Substance: DESVENLAFAXINE
     Indication: DEPRESSION
     Dosage: 50 MG, QD
     Route: 048
     Dates: start: 20171220
  4. PARIET [Concomitant]
     Active Substance: RABEPRAZOLE SODIUM
     Indication: ABDOMINAL PAIN UPPER
     Dosage: 300 MG, QD
     Route: 048
     Dates: start: 20180118
  5. LORAZEPAM. [Concomitant]
     Active Substance: LORAZEPAM
     Indication: ANXIETY
     Dosage: 3 MG, QD
     Route: 048
     Dates: start: 201706
  6. LEE011 [Suspect]
     Active Substance: RIBOCICLIB
     Indication: BREAST CANCER
     Dosage: 600 MG, BID
     Route: 048
     Dates: start: 20171220, end: 20180404
  7. LETROZOLE. [Suspect]
     Active Substance: LETROZOLE
     Indication: BREAST CANCER
     Dosage: 2.5 MG, QD
     Route: 048
     Dates: start: 20171220, end: 20180430
  8. LYRICA [Concomitant]
     Active Substance: PREGABALIN
     Dosage: 300 MG, QD
     Route: 048
     Dates: start: 20180103

REACTIONS (1)
  - Keratitis [Recovered/Resolved]

NARRATIVE: CASE EVENT DATE: 20180411
